FAERS Safety Report 12972882 (Version 1)
Quarter: 2016Q4

REPORT INFORMATION
  Report Type: Spontaneous
  Country: US (occurrence: US)
  Receive Date: 20161124
  Receipt Date: 20161124
  Transmission Date: 20170207
  Serious: No
  Sender: FDA-Public Use
  Company Number: US-PFIZER INC-2016538592

PATIENT
  Age: 75 Year
  Sex: Female
  Weight: 71.2 kg

DRUGS (1)
  1. DEMEROL [Suspect]
     Active Substance: MEPERIDINE HYDROCHLORIDE
     Dosage: UNK

REACTIONS (3)
  - Mental status changes [Unknown]
  - Drug hypersensitivity [Unknown]
  - Drug intolerance [Unknown]
